FAERS Safety Report 12384841 (Version 1)
Quarter: 2016Q2

REPORT INFORMATION
  Report Type: Spontaneous
  Country: US (occurrence: None)
  Receive Date: 20160518
  Receipt Date: 20160518
  Transmission Date: 20160815
  Serious: Yes (Other)
  Sender: FDA-Public Use
  Company Number: None

PATIENT
  Age: 50 Year
  Sex: Female
  Weight: 86.18 kg

DRUGS (5)
  1. KCL [Concomitant]
     Active Substance: POTASSIUM CHLORIDE
  2. HERCEPTIN [Concomitant]
     Active Substance: TRASTUZUMAB
  3. MULTIVITAMIN [Concomitant]
     Active Substance: VITAMINS
  4. TYKERB [Suspect]
     Active Substance: LAPATINIB DITOSYLATE
     Indication: BREAST CANCER
     Route: 048
     Dates: start: 201505, end: 201605
  5. LORTAB [Concomitant]
     Active Substance: ACETAMINOPHEN\HYDROCODONE BITARTRATE

REACTIONS (2)
  - Toothache [None]
  - Tooth infection [None]

NARRATIVE: CASE EVENT DATE: 20160513
